FAERS Safety Report 5741836-4 (Version None)
Quarter: 2008Q2

REPORT INFORMATION
  Report Type: 
  Country: None (occurrence: None)
  Receive Date: 20080515
  Receipt Date: 20080506
  Transmission Date: 20081010
  Serious: Yes (Death, Hospitalization)
  Sender: FDA-Public Use
  Company Number: 2005BI000569

PATIENT
  Age: 68 Year
  Sex: Female

DRUGS (11)
  1. AVONEX [Suspect]
     Indication: MULTIPLE SCLEROSIS
     Dosage: 30 UG; QW; IM
     Route: 030
     Dates: start: 19990301, end: 20041229
  2. TYLENOL [Concomitant]
  3. ELAVIL [Concomitant]
  4. FILGRASTIM [Concomitant]
  5. LANSOPRAZOLE [Concomitant]
  6. LEVAQUIN [Concomitant]
  7. ATIVAN [Concomitant]
  8. REGLAN [Concomitant]
  9. LEVOPHED [Concomitant]
  10. PHENERGAN [Concomitant]
  11. I.V. FLUIDS [Concomitant]

REACTIONS (11)
  - ASTHENIA [None]
  - BACTERIAL SEPSIS [None]
  - DEHYDRATION [None]
  - DISSEMINATED INTRAVASCULAR COAGULATION [None]
  - GASTRIC ULCER [None]
  - INFLUENZA LIKE ILLNESS [None]
  - ORAL INTAKE REDUCED [None]
  - SEPSIS [None]
  - THROMBOCYTOPENIA [None]
  - URINARY TRACT INFECTION [None]
  - WHITE BLOOD CELL COUNT DECREASED [None]
